FAERS Safety Report 9240152 (Version 1)
Quarter: 2013Q2

REPORT INFORMATION
  Report Type: Spontaneous
  Country: US (occurrence: None)
  Receive Date: 20130417
  Receipt Date: 20130417
  Transmission Date: 20140414
  Serious: Yes (Other)
  Sender: FDA-Public Use
  Company Number: 001513773A

PATIENT
  Age: 62 Year
  Sex: Female

DRUGS (3)
  1. MEANINGFUL BEAUTY ANTIOXIDANT DAY CREME SPF 20 [Suspect]
     Dosage: DERMAL
     Dates: start: 20120819, end: 20130318
  2. XANAX [Concomitant]
  3. TYLENOL [Concomitant]

REACTIONS (6)
  - Dyspnoea [None]
  - Wheezing [None]
  - Swollen tongue [None]
  - Speech disorder [None]
  - Dysphagia [None]
  - Urticaria [None]
